FAERS Safety Report 9433336 (Version 3)
Quarter: 2013Q3

REPORT INFORMATION
  Report Type: Spontaneous
  Country: US (occurrence: US)
  Receive Date: 20130731
  Receipt Date: 20130905
  Transmission Date: 20140515
  Serious: No
  Sender: FDA-Public Use
  Company Number: US-PFIZER INC-2013219061

PATIENT
  Sex: Female

DRUGS (4)
  1. DETROL [Suspect]
     Indication: HYPERTONIC BLADDER
     Dosage: UNK
  2. DETROL [Suspect]
     Indication: INCONTINENCE
  3. TOVIAZ [Suspect]
     Indication: HYPERTONIC BLADDER
     Dosage: 8 MG, UNK
     Dates: start: 20130711
  4. TOVIAZ [Suspect]
     Indication: INCONTINENCE

REACTIONS (1)
  - Drug effect incomplete [Unknown]
